FAERS Safety Report 15067194 (Version 1)
Quarter: 2018Q2

REPORT INFORMATION
  Report Type: Report from Study
  Country: US (occurrence: US)
  Receive Date: 20180626
  Receipt Date: 20180626
  Transmission Date: 20180711
  Serious: Yes (Death, Hospitalization, Other)
  Sender: FDA-Public Use
  Company Number: US-PFIZER INC-2017545273

PATIENT
  Age: 63 Year
  Sex: Female

DRUGS (4)
  1. FASLODEX [Suspect]
     Active Substance: FULVESTRANT
     Dosage: 3 DF, UNK
  2. IBRANCE [Suspect]
     Active Substance: PALBOCICLIB
     Dosage: 125 MG, CYCLIC (DAILY, 4 WEEKS ON, 1 WEEK OFF)
     Route: 048
     Dates: start: 20171216
  3. IBRANCE [Suspect]
     Active Substance: PALBOCICLIB
     Indication: BREAST CANCER
     Dosage: 125 MG, CYCLIC (DAILY FOR 21 DAYS EVERY 28 DAY CYCLE)
     Route: 048
     Dates: start: 20171207
  4. IBRANCE [Suspect]
     Active Substance: PALBOCICLIB
     Dosage: 125 MG, DAILY
     Route: 048
     Dates: start: 20171208

REACTIONS (17)
  - Dyspnoea [Recovered/Resolved]
  - Influenza like illness [Unknown]
  - Hepatic enzyme increased [Unknown]
  - Haemoglobin decreased [Unknown]
  - Fatigue [Recovered/Resolved]
  - Chest pain [Unknown]
  - Dizziness [Unknown]
  - Blister [Recovered/Resolved]
  - Alopecia [Unknown]
  - Body temperature increased [Unknown]
  - Epistaxis [Unknown]
  - Balance disorder [Unknown]
  - Death [Fatal]
  - Red blood cell count decreased [Unknown]
  - Decreased appetite [Recovered/Resolved]
  - Neoplasm progression [Unknown]
  - Ear infection [Unknown]

NARRATIVE: CASE EVENT DATE: 201803
